FAERS Safety Report 6533926-3 (Version None)
Quarter: 2010Q1

REPORT INFORMATION
  Report Type: 
  Country: None (occurrence: None)
  Receive Date: 20100111
  Receipt Date: 20091228
  Transmission Date: 20100710
  Serious: Yes (Disabling, Other)
  Sender: FDA-Public Use
  Company Number: US-MYLANLABS-2009S1021985

PATIENT
  Age: 16 Year

DRUGS (7)
  1. METHOTREXATE [Suspect]
     Indication: RHABDOMYOSARCOMA
     Dosage: 15 MG/M2 X THREE DOSES
     Route: 037
  2. CYTARABINE [Suspect]
     Indication: RHABDOMYOSARCOMA
     Dosage: 60 MG/M2 X THREE DOSES
     Route: 037
  3. HYDROCORTISONE [Suspect]
     Indication: RHABDOMYOSARCOMA
     Dosage: 30 MG/M2 X THREE DOSES
     Route: 037
  4. VINCRISTINE [Suspect]
     Indication: RHABDOMYOSARCOMA
  5. DACTINOMYCIN [Suspect]
     Indication: RHABDOMYOSARCOMA
  6. CYCLOPHOSPHAMIDE [Suspect]
     Indication: RHABDOMYOSARCOMA
  7. FOLINIC ACID [Concomitant]

REACTIONS (1)
  - MYELITIS [None]
